FAERS Safety Report 8906331 (Version 1)
Quarter: 2012Q4

REPORT INFORMATION
  Report Type: Spontaneous
  Country: US (occurrence: None)
  Receive Date: 20121112
  Receipt Date: 20121112
  Transmission Date: 20130627
  Serious: Yes (Other)
  Sender: FDA-Public Use
  Company Number: None

PATIENT

DRUGS (1)
  1. CIMZIA [Suspect]
     Indication: RHEUMATOID ARTHRITIS
     Dates: start: 20120715, end: 20121023

REACTIONS (4)
  - X-ray abnormal [None]
  - Osteomyelitis [None]
  - Bone cancer [None]
  - Bone disorder [None]
